FAERS Safety Report 23577834 (Version 1)
Quarter: 2024Q1

REPORT INFORMATION
  Report Type: Spontaneous
  Country: US (occurrence: US)
  Receive Date: 20240228
  Receipt Date: 20240228
  Transmission Date: 20240410
  Serious: No
  Sender: FDA-Public Use
  Company Number: US-BIOMARINAP-US-2024-155994

PATIENT

DRUGS (8)
  1. PALYNZIQ [Suspect]
     Active Substance: PEGVALIASE-PQPZ
     Indication: Phenylketonuria
     Dosage: 2.5 MILLIGRAM
     Route: 058
     Dates: start: 202402
  2. PALYNZIQ [Suspect]
     Active Substance: PEGVALIASE-PQPZ
     Dosage: 2.5 MILLIGRAM
     Route: 058
     Dates: start: 20240202, end: 20240219
  3. PALYNZIQ [Suspect]
     Active Substance: PEGVALIASE-PQPZ
     Dosage: 2.5 MILLIGRAM, QW
     Route: 058
     Dates: start: 20231206
  4. KETOROLAC TROMETHAMINE [Concomitant]
     Active Substance: KETOROLAC TROMETHAMINE
     Indication: Product used for unknown indication
  5. FAMOTIDINE [Concomitant]
     Active Substance: FAMOTIDINE
     Indication: Premedication
     Dosage: 10 MILLIGRAM
  6. FAMOTIDINE [Concomitant]
     Active Substance: FAMOTIDINE
     Dosage: 40 MILLIGRAM, QD
     Dates: start: 20231128
  7. LORATADINE [Concomitant]
     Active Substance: LORATADINE
     Indication: Premedication
     Dosage: 10 MILLIGRAM, QD
  8. LORATADINE [Concomitant]
     Active Substance: LORATADINE
     Dosage: 20 MILLIGRAM, BID
     Dates: start: 20231128

REACTIONS (3)
  - Injection site reaction [Recovering/Resolving]
  - Injection site swelling [Recovering/Resolving]
  - Rash [Recovering/Resolving]

NARRATIVE: CASE EVENT DATE: 20240201
